FAERS Safety Report 5598676-9 (Version None)
Quarter: 2008Q1

REPORT INFORMATION
  Report Type: 
  Country: None (occurrence: None)
  Receive Date: 20080117
  Receipt Date: 20080109
  Transmission Date: 20080703
  Serious: Yes (Disabling)
  Sender: FDA-Public Use
  Company Number: OSCN-PR-0801S-0016

PATIENT
  Age: 34 Year
  Sex: Male

DRUGS (1)
  1. OMNISCAN [Suspect]
     Indication: VON HIPPEL-LINDAU DISEASE
     Dosage: 15 ADMINISTRATIONS

REACTIONS (3)
  - DIALYSIS [None]
  - NEPHROGENIC SYSTEMIC FIBROSIS [None]
  - RENAL IMPAIRMENT [None]
